FAERS Safety Report 19202547 (Version 1)
Quarter: 2021Q2

REPORT INFORMATION
  Report Type: Report from Study
  Country: US (occurrence: US)
  Receive Date: 20210430
  Receipt Date: 20210430
  Transmission Date: 20210717
  Serious: Yes (Disabling, Other)
  Sender: FDA-Public Use
  Company Number: US-REGENERON PHARMACEUTICALS, INC.-2021-45649

PATIENT

DRUGS (1)
  1. EYLEA [Suspect]
     Active Substance: AFLIBERCEPT
     Indication: PRODUCT USED FOR UNKNOWN INDICATION
     Dosage: 2 MG/0.05 ML SDV INTRAVITREALLY BOTH EYES
     Route: 031

REACTIONS (4)
  - Vitreous floaters [Unknown]
  - Blindness [Unknown]
  - Eye swelling [Unknown]
  - Eye irritation [Unknown]
